FAERS Safety Report 25193473 (Version 1)
Quarter: 2025Q2

REPORT INFORMATION
  Report Type: Report from Study
  Country: US (occurrence: US)
  Receive Date: 20250414
  Receipt Date: 20250414
  Transmission Date: 20250716
  Serious: Yes (Other)
  Sender: ALEXION PHARMACEUTICALS
  Company Number: US-AstraZeneca-CH-00844798A

PATIENT

DRUGS (2)
  1. OSIMERTINIB [Suspect]
     Active Substance: OSIMERTINIB
     Indication: Lung carcinoma cell type unspecified stage 0
  2. ZOFRAN [Concomitant]
     Active Substance: ONDANSETRON HYDROCHLORIDE
     Route: 065

REACTIONS (14)
  - Disease progression [Unknown]
  - Metastases to central nervous system [Unknown]
  - Rash [Unknown]
  - Nail disorder [Unknown]
  - Renal disorder [Unknown]
  - Chronic kidney disease [Unknown]
  - Blood creatinine increased [Unknown]
  - Oropharyngeal pain [Unknown]
  - Nail infection [Unknown]
  - Decreased appetite [Unknown]
  - Fatigue [Unknown]
  - Nausea [Unknown]
  - Weight decreased [Unknown]
  - Constipation [Unknown]
